FAERS Safety Report 5122997-7 (Version None)
Quarter: 2006Q4

REPORT INFORMATION
  Report Type: 
  Country: None (occurrence: None)
  Receive Date: 20061004
  Receipt Date: 20061004
  Transmission Date: 20070319
  Serious: Yes (Life-Threatening, Disabling)
  Sender: FDA-Public Use
  Company Number: None

PATIENT
  Age: 53 Year
  Sex: Female
  Weight: 79.3795 kg

DRUGS (7)
  1. VIOXX [Suspect]
     Indication: INFLAMMATION
     Dosage: 200 MG 2/DA
     Dates: start: 20010301, end: 20020601
  2. VIOXX [Suspect]
     Indication: PAIN
     Dosage: 200 MG 2/DA
     Dates: start: 20010301, end: 20020601
  3. VIOXX [Suspect]
  4. VIOXX [Suspect]
     Indication: INFLAMMATION
     Dosage: 1/DA (ONLY ONE OR TWO DOSES)
  5. VIOXX [Suspect]
     Indication: PAIN
     Dosage: 1/DA (ONLY ONE OR TWO DOSES)
  6. ROFECOXIB [Suspect]
  7. . [Concomitant]

REACTIONS (6)
  - ADVERSE DRUG REACTION [None]
  - HEADACHE [None]
  - HYPERTENSION [None]
  - MYOCARDIAL INFARCTION [None]
  - RENAL DISORDER [None]
  - VOMITING [None]
